FAERS Safety Report 5674723-0 (Version None)
Quarter: 2008Q2

REPORT INFORMATION
  Report Type: 
  Country: None (occurrence: None)
  Receive Date: 20080304
  Receipt Date: 20070821
  Transmission Date: 20081010
  Serious: Yes (Hospitalization)
  Sender: FDA-Public Use
  Company Number: WAES 0708USA03946

PATIENT
  Age: 60 Year
  Sex: Female

DRUGS (2)
  1. PRINIVIL [Suspect]
     Dosage: PO
     Route: 048
  2. ENBREL [Suspect]
     Indication: PSORIASIS
     Dates: start: 20040101, end: 20070501

REACTIONS (2)
  - PANCREATITIS [None]
  - RENAL FAILURE [None]
